FAERS Safety Report 22239547 (Version 1)
Quarter: 2023Q2

REPORT INFORMATION
  Report Type: Spontaneous
  Country: US (occurrence: US)
  Receive Date: 20230421
  Receipt Date: 20230421
  Transmission Date: 20230721
  Serious: Yes (Life-Threatening, Hospitalization, Other)
  Sender: FDA-Public Use
  Company Number: US-BRISTOL-MYERS SQUIBB COMPANY-2023-056283

PATIENT
  Age: 78 Year
  Sex: Male

DRUGS (1)
  1. ZEPOSIA [Suspect]
     Active Substance: OZANIMOD HYDROCHLORIDE
     Indication: Product used for unknown indication
     Route: 048

REACTIONS (9)
  - Chronic obstructive pulmonary disease [Unknown]
  - Sepsis [Unknown]
  - Pneumonia [Unknown]
  - Acute respiratory failure [Unknown]
  - Hypotension [Unknown]
  - Clostridium difficile colitis [Unknown]
  - Generalised oedema [Unknown]
  - Ileus [Unknown]
  - Heart rate irregular [Unknown]

NARRATIVE: CASE EVENT DATE: 20230201
